FAERS Safety Report 12695835 (Version 1)
Quarter: 2016Q3

REPORT INFORMATION
  Report Type: Spontaneous
  Country: US (occurrence: US)
  Receive Date: 20160829
  Receipt Date: 20160829
  Transmission Date: 20161109
  Serious: No
  Sender: FDA-Public Use
  Company Number: US-LUNDBECK-DKLU2016949

PATIENT
  Age: 39 Year
  Sex: Female

DRUGS (3)
  1. CORLANOR [Suspect]
     Active Substance: IVABRADINE HYDROCHLORIDE
     Indication: PRODUCT USED FOR UNKNOWN INDICATION
     Route: 065
  2. NORTHERA [Suspect]
     Active Substance: DROXIDOPA
     Indication: PRODUCT USED FOR UNKNOWN INDICATION
     Dosage: SCHEDULE B COMPLETE
     Route: 065
     Dates: start: 201601
  3. NORTHERA [Suspect]
     Active Substance: DROXIDOPA
     Dosage: OPTION C
     Route: 065

REACTIONS (9)
  - Drug administration error [Unknown]
  - Weight increased [Unknown]
  - Drug dose omission [Unknown]
  - Nasopharyngitis [Unknown]
  - Abdominal distension [Unknown]
  - Fatigue [Unknown]
  - Dyspnoea [Unknown]
  - Palpitations [Unknown]
  - Migraine [Unknown]

NARRATIVE: CASE EVENT DATE: 20160722
